FAERS Safety Report 9696191 (Version 1)
Quarter: 2013Q4

REPORT INFORMATION
  Report Type: Spontaneous
  Country: US (occurrence: US)
  Receive Date: 20131119
  Receipt Date: 20131119
  Transmission Date: 20140711
  Serious: Yes (Other)
  Sender: FDA-Public Use
  Company Number: US-CUBIST PHARMACEUTICALS, INC.-2013CBST001163

PATIENT
  Sex: 0

DRUGS (9)
  1. CUBICIN [Suspect]
     Indication: DEVICE RELATED INFECTION
     Dosage: UNK UNK UNK
     Route: 065
     Dates: start: 20120131
  2. CUBICIN [Suspect]
     Indication: ENDOCARDITIS STAPHYLOCOCCAL
  3. CUBICIN [Suspect]
     Indication: OFF LABEL USE
  4. VANCOMYCIN [Concomitant]
     Indication: DEVICE RELATED INFECTION
     Dosage: UNK UNK, UNK
     Route: 065
  5. VANCOMYCIN [Concomitant]
     Indication: ENDOCARDITIS STAPHYLOCOCCAL
  6. RIFAMPICIN [Concomitant]
     Indication: DEVICE RELATED INFECTION
     Dosage: UNK UNK, UNK
     Route: 065
  7. RIFAMPICIN [Concomitant]
     Indication: ENDOCARDITIS STAPHYLOCOCCAL
  8. CEFTAROLINE FOSAMIL [Concomitant]
     Indication: DEVICE RELATED INFECTION
     Dosage: 400 MG EVERY 12 HOURS
     Route: 042
     Dates: start: 20120227
  9. CEFTAROLINE FOSAMIL [Concomitant]
     Indication: ENDOCARDITIS STAPHYLOCOCCAL

REACTIONS (4)
  - Pancreatic cyst [Unknown]
  - Pancreatic haemorrhage [Unknown]
  - Staphylococcal bacteraemia [Recovered/Resolved]
  - Enterococcal bacteraemia [Unknown]
